FAERS Safety Report 26126727 (Version 1)
Quarter: 2025Q4

REPORT INFORMATION
  Report Type: Report from Study
  Country: KR (occurrence: KR)
  Receive Date: 20251205
  Receipt Date: 20251205
  Transmission Date: 20260118
  Serious: Yes (Death)
  Sender: AMGEN
  Company Number: KR-AMGEN-KORNI2025240480

PATIENT
  Age: 66 Year
  Sex: Female

DRUGS (4)
  1. TARLATAMAB [Suspect]
     Active Substance: TARLATAMAB
     Indication: Small cell lung cancer recurrent
     Dosage: 10 MILLIGRAM
     Route: 040
     Dates: start: 20250612, end: 20250725
  2. TARLATAMAB [Suspect]
     Active Substance: TARLATAMAB
     Indication: Small cell lung cancer metastatic
  3. Codaewon [Concomitant]
  4. ULTRACET [Concomitant]
     Active Substance: ACETAMINOPHEN\TRAMADOL HYDROCHLORIDE

REACTIONS (1)
  - Small cell lung cancer [Fatal]

NARRATIVE: CASE EVENT DATE: 20250806
